FAERS Safety Report 7201697-3 (Version None)
Quarter: 2010Q4

REPORT INFORMATION
  Report Type: 
  Country: None (occurrence: None)
  Receive Date: 20101229
  Receipt Date: 20101222
  Transmission Date: 20110411
  Serious: Yes (Hospitalization)
  Sender: FDA-Public Use
  Company Number: JP-ROCHE-745872

PATIENT
  Sex: Female
  Weight: 59 kg

DRUGS (28)
  1. ACTEMRA [Suspect]
     Indication: RHEUMATOID ARTHRITIS
     Route: 041
     Dates: start: 20080904, end: 20080904
  2. ACTEMRA [Suspect]
     Route: 041
     Dates: start: 20081002, end: 20081002
  3. ACTEMRA [Suspect]
     Route: 041
     Dates: start: 20081030, end: 20081030
  4. ACTEMRA [Suspect]
     Route: 041
     Dates: start: 20081127, end: 20081127
  5. ACTEMRA [Suspect]
     Route: 041
     Dates: start: 20081225, end: 20081225
  6. ACTEMRA [Suspect]
     Route: 041
     Dates: start: 20090122, end: 20090122
  7. ACTEMRA [Suspect]
     Route: 041
     Dates: start: 20090219, end: 20090219
  8. ACTEMRA [Suspect]
     Route: 041
     Dates: start: 20090319, end: 20090319
  9. ACTEMRA [Suspect]
     Route: 041
     Dates: start: 20090417, end: 20090417
  10. ACTEMRA [Suspect]
     Route: 041
     Dates: start: 20090515, end: 20090515
  11. ACTEMRA [Suspect]
     Route: 041
     Dates: start: 20090612, end: 20090612
  12. ACTEMRA [Suspect]
     Route: 041
     Dates: start: 20090710, end: 20090710
  13. ACTEMRA [Suspect]
     Route: 041
     Dates: start: 20090807, end: 20090807
  14. ACTEMRA [Suspect]
     Route: 041
     Dates: start: 20090904, end: 20101001
  15. METHOTREXATE [Concomitant]
     Dosage: FORM:PERORAL AGENT
     Route: 048
     Dates: end: 20080723
  16. METHOTREXATE [Concomitant]
     Route: 048
     Dates: start: 20080724
  17. PREDNISOLONE [Concomitant]
     Dosage: FORM: PERORAL AGENT
     Route: 048
     Dates: start: 20081127
  18. ACTOS [Concomitant]
     Route: 048
  19. BLOPRESS [Concomitant]
     Route: 048
  20. NORVASC [Concomitant]
     Route: 048
  21. ROCALTROL [Concomitant]
     Route: 048
  22. FOLIAMIN [Concomitant]
     Dosage: PER ORAL AGENT
     Route: 048
  23. SELBEX [Concomitant]
     Dosage: PERORAL AGENT
     Route: 048
  24. VOLTAREN [Concomitant]
     Dosage: PERORAL AGENT
     Route: 048
  25. LASIX [Concomitant]
     Route: 048
  26. LIPITOR [Concomitant]
     Route: 048
  27. ALESION [Concomitant]
     Route: 048
  28. PARIET [Concomitant]
     Route: 048

REACTIONS (1)
  - LOWER GASTROINTESTINAL HAEMORRHAGE [None]
